FAERS Safety Report 10264688 (Version 1)
Quarter: 2014Q2

REPORT INFORMATION
  Report Type: Spontaneous
  Country: US (occurrence: US)
  Receive Date: 20140627
  Receipt Date: 20140627
  Transmission Date: 20141212
  Serious: No
  Sender: FDA-Public Use
  Company Number: US-GLAXOSMITHKLINE-A1071400A

PATIENT
  Age: 85 Year
  Sex: Female

DRUGS (6)
  1. TAFINLAR [Suspect]
     Indication: METASTATIC MALIGNANT MELANOMA
     Dosage: 1TAB TWICE PER DAY
     Route: 048
     Dates: start: 201108
  2. ENOXAPARIN [Suspect]
     Route: 042
     Dates: start: 201404
  3. LIPITOR [Concomitant]
  4. LOPRESSOR [Concomitant]
  5. SUPPLEMENT [Concomitant]
  6. RECLAST [Concomitant]

REACTIONS (2)
  - Injection site induration [Unknown]
  - Injection site discolouration [Unknown]
